FAERS Safety Report 13363945 (Version 2)
Quarter: 2017Q2

REPORT INFORMATION
  Report Type: Report from Study
  Country: US (occurrence: US)
  Receive Date: 20170323
  Receipt Date: 20170404
  Transmission Date: 20170830
  Serious: Yes (Death, Hospitalization)
  Sender: FDA-Public Use
  Company Number: US-JNJFOC-20170323477

PATIENT
  Age: 72 Year
  Sex: Male

DRUGS (15)
  1. BENZONATATE. [Concomitant]
     Active Substance: BENZONATATE
  2. FUROSEMIDE. [Concomitant]
     Active Substance: FUROSEMIDE
  3. ALBUTEROL SULFATE. [Concomitant]
     Active Substance: ALBUTEROL SULFATE
  4. ALPRAZOLAM. [Concomitant]
     Active Substance: ALPRAZOLAM
  5. HEPARIN LOCK FLUSH [Concomitant]
     Active Substance: HEPARIN SODIUM
  6. METFORMIN HCL [Concomitant]
     Active Substance: METFORMIN HYDROCHLORIDE
  7. PREDNISONE. [Concomitant]
     Active Substance: PREDNISONE
  8. ACETAMINOPHEN. [Concomitant]
     Active Substance: ACETAMINOPHEN
  9. INSULIN [Concomitant]
     Active Substance: INSULIN NOS
  10. PANTOPRAZOLE SODIUM. [Concomitant]
     Active Substance: PANTOPRAZOLE SODIUM
  11. IMBRUVICA [Suspect]
     Active Substance: IBRUTINIB
     Indication: CHRONIC LYMPHOCYTIC LEUKAEMIA
     Route: 048
  12. ALLOPURINOL. [Concomitant]
     Active Substance: ALLOPURINOL
  13. INVOKANA [Concomitant]
     Active Substance: CANAGLIFLOZIN
  14. SODIUM CHLORIDE. [Concomitant]
     Active Substance: SODIUM CHLORIDE
  15. LOSARTAN POTASSIUM AND HYDROCHLOROTHIAZIDE [Concomitant]
     Active Substance: HYDROCHLOROTHIAZIDE\LOSARTAN POTASSIUM

REACTIONS (5)
  - Hypotension [Not Recovered/Not Resolved]
  - Myalgia [Not Recovered/Not Resolved]
  - Infection [Not Recovered/Not Resolved]
  - Fluid retention [Not Recovered/Not Resolved]
  - Death [Fatal]

NARRATIVE: CASE EVENT DATE: 201703
